FAERS Safety Report 10662437 (Version 2)
Quarter: 2015Q1

REPORT INFORMATION
  Report Type: Spontaneous
  Country: GB (occurrence: GB)
  Receive Date: 20141218
  Receipt Date: 20150129
  Transmission Date: 20150720
  Serious: Yes (Other)
  Sender: FDA-Public Use
  Company Number: GB-TEVA-529625ISR

PATIENT
  Sex: Female

DRUGS (1)
  1. COPAXONE [Suspect]
     Active Substance: GLATIRAMER ACETATE
     Indication: MULTIPLE SCLEROSIS
     Dosage: BEEN ON COPAXONE FOR A FEW YEARS
     Route: 065
     Dates: start: 201410, end: 201406

REACTIONS (2)
  - Menstruation irregular [Not Recovered/Not Resolved]
  - Multiple sclerosis [Unknown]
